FAERS Safety Report 4881903-0 (Version None)
Quarter: 2006Q1

REPORT INFORMATION
  Report Type: 
  Country: None (occurrence: None)
  Receive Date: 20060112
  Receipt Date: 20051230
  Transmission Date: 20060701
  Serious: Yes (Hospitalization)
  Sender: FDA-Public Use
  Company Number: 220668

PATIENT
  Sex: Female
  Weight: 55 kg

DRUGS (3)
  1. AVASTIN [Suspect]
     Indication: ADENOCARCINOMA PANCREAS
     Dosage: 10 MG/M2, Q28D, INTRAVENOUS
     Route: 042
     Dates: start: 20051103
  2. GEMCITABINE             (GEMCITABINE HYDROCHLORIDE) [Suspect]
     Indication: ADENOCARCINOMA PANCREAS
     Dosage: 1000 MG/M2, Q28D; INTRAVENOUS
     Route: 042
     Dates: start: 20051103
  3. OXALIPLATIN (OXALIPLATIN) [Suspect]
     Indication: ADENOCARCINOMA PANCREAS
     Dosage: 100 MG/M2, Q28D, INTRAVENOUS
     Route: 042
     Dates: start: 20051103

REACTIONS (7)
  - BLOOD PRESSURE DIASTOLIC INCREASED [None]
  - GASTROINTESTINAL HAEMORRHAGE [None]
  - INFECTION [None]
  - OXYGEN SATURATION DECREASED [None]
  - PNEUMONIA [None]
  - SEPSIS [None]
  - WHITE BLOOD CELL COUNT DECREASED [None]
